FAERS Safety Report 4295620-1 (Version None)
Quarter: 2004Q1

REPORT INFORMATION
  Report Type: 
  Country: None (occurrence: None)
  Receive Date: 20040216
  Receipt Date: 20030730
  Transmission Date: 20041129
  Serious: No
  Sender: FDA-Public Use
  Company Number: US-GLAXOSMITHKLINE-A0418991A

PATIENT
  Age: 31 Year
  Sex: Male

DRUGS (2)
  1. PAXIL [Suspect]
     Indication: PANIC REACTION
     Route: 048
     Dates: start: 20030701, end: 20030728
  2. LISINOPRIL [Concomitant]

REACTIONS (2)
  - GASTRIC DISORDER [None]
  - HYPOAESTHESIA [None]
